FAERS Safety Report 13043998 (Version 1)
Quarter: 2016Q4

REPORT INFORMATION
  Report Type: Spontaneous
  Country: US (occurrence: US)
  Receive Date: 20161220
  Receipt Date: 20161220
  Transmission Date: 20170207
  Serious: Yes (Other)
  Sender: FDA-Public Use
  Company Number: US-ROCHE-1018536

PATIENT
  Sex: Male

DRUGS (1)
  1. ZELBORAF [Suspect]
     Active Substance: VEMURAFENIB
     Indication: MALIGNANT MELANOMA
     Dosage: UNKNOWN
     Route: 048

REACTIONS (14)
  - Skin exfoliation [Unknown]
  - Alopecia [Unknown]
  - Peripheral swelling [Unknown]
  - Pruritus [Unknown]
  - Myalgia [Unknown]
  - Squamous cell carcinoma [Unknown]
  - Mass [Unknown]
  - Pain in extremity [Unknown]
  - Rash [Unknown]
  - Sunburn [Unknown]
  - Skin papilloma [Unknown]
  - Arthralgia [Unknown]
  - Somnolence [Unknown]
  - Diarrhoea [Unknown]
